FAERS Safety Report 7688442-2 (Version None)
Quarter: 2011Q3

REPORT INFORMATION
  Report Type: 
  Country: None (occurrence: None)
  Receive Date: 20110817
  Receipt Date: 20110805
  Transmission Date: 20111222
  Serious: Yes (Hospitalization)
  Sender: FDA-Public Use
  Company Number: JP-ROCHE-796112

PATIENT
  Sex: Female

DRUGS (29)
  1. TOCILIZUMAB [Suspect]
     Route: 041
     Dates: start: 20090924, end: 20091022
  2. IMMUNE GLOBULIN (HUMAN) [Concomitant]
  3. PREDNISOLONE [Concomitant]
     Route: 048
     Dates: start: 20090512, end: 20090516
  4. PREDNISOLONE [Concomitant]
     Route: 048
     Dates: start: 20090517, end: 20090518
  5. PREDNISOLONE [Concomitant]
     Route: 048
     Dates: start: 20091008, end: 20091112
  6. PREDNISOLONE [Concomitant]
     Route: 048
     Dates: start: 20091218, end: 20091231
  7. PREDNISOLONE [Concomitant]
     Route: 048
     Dates: start: 20100219
  8. PREDNISOLONE [Concomitant]
     Route: 048
     Dates: start: 20090906, end: 20090921
  9. PREDNISOLONE [Concomitant]
     Route: 048
     Dates: start: 20090925, end: 20091007
  10. PREDNISOLONE [Concomitant]
     Route: 048
     Dates: start: 20091113, end: 20091217
  11. PREDNISOLONE [Concomitant]
     Route: 048
     Dates: start: 20100115, end: 20100218
  12. SOLU-MEDROL [Concomitant]
     Dates: start: 20090624, end: 20090626
  13. LANSOPRAZOLE [Concomitant]
  14. PREDNISOLONE [Concomitant]
     Route: 048
     Dates: start: 20090529, end: 20090530
  15. PREDNISOLONE [Concomitant]
     Route: 048
     Dates: start: 20090703, end: 20090719
  16. PREDNISOLONE [Concomitant]
     Route: 048
     Dates: start: 20090827, end: 20090831
  17. PREDNISOLONE [Concomitant]
     Route: 048
     Dates: start: 20090519, end: 20090528
  18. PREDNISOLONE [Concomitant]
     Route: 048
     Dates: start: 20090822, end: 20090826
  19. PREDNISOLONE [Concomitant]
     Route: 048
     Dates: start: 20090922, end: 20090924
  20. BETAMETHASONE [Concomitant]
     Route: 048
     Dates: start: 20090720, end: 20090821
  21. PREDNISOLONE [Concomitant]
     Route: 048
     Dates: start: 20090627, end: 20090702
  22. PREDNISOLONE [Concomitant]
     Route: 048
     Dates: start: 20100101, end: 20100114
  23. ONEALFA [Concomitant]
  24. PREDNISOLONE [Concomitant]
     Route: 048
     Dates: start: 20090612, end: 20090623
  25. TOCILIZUMAB [Suspect]
     Indication: CASTLEMAN'S DISEASE
     Route: 041
     Dates: start: 20090724, end: 20090911
  26. PREDNISOLONE [Concomitant]
     Route: 048
     Dates: start: 20090531, end: 20090604
  27. PREDNISOLONE [Concomitant]
     Route: 048
     Dates: start: 20090605, end: 20090611
  28. PREDNISOLONE [Concomitant]
     Route: 048
     Dates: start: 20090901, end: 20090905
  29. NEORAL [Concomitant]

REACTIONS (3)
  - NEUROPSYCHIATRIC LUPUS [None]
  - LIVER DISORDER [None]
  - CHOLECYSTITIS [None]
